FAERS Safety Report 5102346-0 (Version None)
Quarter: 2006Q3

REPORT INFORMATION
  Report Type: 
  Country: None (occurrence: None)
  Receive Date: 20060912
  Receipt Date: 20060509
  Transmission Date: 20061208
  Serious: No
  Sender: FDA-Public Use
  Company Number: US-GLAXOSMITHKLINE-A0604886A

PATIENT
  Age: 78 Year
  Sex: Female

DRUGS (3)
  1. FLOVENT [Suspect]
     Indication: ASTHMA
     Dosage: 2PUFF AT NIGHT
     Route: 055
  2. FLOVENT [Suspect]
     Dosage: 2PUFF AT NIGHT
     Route: 055
  3. SYNTHROID [Concomitant]

REACTIONS (7)
  - COUGH [None]
  - DRY MOUTH [None]
  - DYSPHONIA [None]
  - HEADACHE [None]
  - PHARMACEUTICAL PRODUCT COMPLAINT [None]
  - SENSATION OF FOREIGN BODY [None]
  - WHEEZING [None]
